FAERS Safety Report 8101535-0 (Version None)
Quarter: 2012Q1

REPORT INFORMATION
  Report Type: 
  Country: None (occurrence: None)
  Receive Date: 20120129
  Receipt Date: 20110917
  Transmission Date: 20120608
  Serious: No
  Sender: FDA-Public Use
  Company Number: US-ABBOTT-11P-163-0855703-00

PATIENT
  Age: 63 Year
  Sex: Male

DRUGS (14)
  1. COQ10 [Concomitant]
     Indication: PRODUCT USED FOR UNKNOWN INDICATION
  2. SIMVASTATIN [Concomitant]
     Indication: BLOOD CHOLESTEROL
  3. WARFARIN SODIUM [Concomitant]
     Indication: ANTICOAGULANT THERAPY
  4. HUMIRA [Suspect]
     Indication: ANKYLOSING SPONDYLITIS
     Dates: start: 20101201
  5. TRICOR [Concomitant]
     Indication: BLOOD CHOLESTEROL
  6. OXYCONTIN [Concomitant]
     Indication: PAIN
  7. LISINOPRIL [Concomitant]
     Indication: HYPERTENSION
  8. XANAX [Concomitant]
     Indication: ANXIOLYTIC THERAPY
  9. CYMBALTA [Concomitant]
     Indication: DEPRESSION
  10. TEMAZEPAM [Concomitant]
     Indication: PRODUCT USED FOR UNKNOWN INDICATION
  11. MIRAPEX [Concomitant]
     Indication: RESTLESS LEGS SYNDROME
  12. TOPROL-XL [Concomitant]
     Indication: ATRIAL FIBRILLATION
  13. OXYCODONE HCL [Concomitant]
     Indication: PAIN
  14. CLONIDINE [Concomitant]
     Indication: HYPERTENSION

REACTIONS (5)
  - BRONCHITIS [None]
  - COUGH [None]
  - SINUS HEADACHE [None]
  - NASOPHARYNGITIS [None]
  - THROAT IRRITATION [None]
